FAERS Safety Report 25636469 (Version 1)
Quarter: 2025Q3

REPORT INFORMATION
  Report Type: Spontaneous
  Country: JP (occurrence: JP)
  Receive Date: 20250803
  Receipt Date: 20250803
  Transmission Date: 20251021
  Serious: Yes (Other)
  Sender: MERCK SHARP & DOHME LLC
  Company Number: JP-009507513-2315089

PATIENT
  Age: 71 Year
  Sex: Male

DRUGS (2)
  1. KEYTRUDA [Suspect]
     Active Substance: PEMBROLIZUMAB
     Indication: Lung neoplasm malignant
     Route: 065
  2. KEYTRUDA [Suspect]
     Active Substance: PEMBROLIZUMAB
     Indication: Lung neoplasm malignant
     Route: 065

REACTIONS (7)
  - Pulmonary toxicity [Unknown]
  - Cough [Unknown]
  - Pyrexia [Unknown]
  - Inflammation [Unknown]
  - Polychondritis [Unknown]
  - Dysphonia [Unknown]
  - Nasal septum disorder [Unknown]

NARRATIVE: CASE EVENT DATE: 20210101
